FAERS Safety Report 9700785 (Version 1)
Quarter: 2013Q4

REPORT INFORMATION
  Report Type: Spontaneous
  Country: US (occurrence: US)
  Receive Date: 20131121
  Receipt Date: 20131121
  Transmission Date: 20140711
  Serious: Yes (Other)
  Sender: FDA-Public Use
  Company Number: CHPA2013US017111

PATIENT
  Sex: Female

DRUGS (6)
  1. EXCEDRIN UNKNOWN [Suspect]
     Indication: MUSCULOSKELETAL PAIN
     Dosage: UNK, UNK
     Route: 048
  2. EXCEDRIN UNKNOWN [Suspect]
     Indication: INTERVERTEBRAL DISC PROTRUSION
  3. EXCEDRIN UNKNOWN [Suspect]
     Indication: OFF LABEL USE
  4. EXCEDRIN MIGRAINE [Suspect]
     Indication: INTERVERTEBRAL DISC PROTRUSION
     Dosage: 2 DF, UNK
  5. EXCEDRIN MIGRAINE [Suspect]
     Indication: BACK PAIN
  6. EXCEDRIN MIGRAINE [Suspect]
     Indication: OFF LABEL USE

REACTIONS (5)
  - Intervertebral disc protrusion [Unknown]
  - Accident at work [Unknown]
  - Neck pain [Unknown]
  - Musculoskeletal pain [Unknown]
  - Back pain [Unknown]
